FAERS Safety Report 9480551 (Version 2)
Quarter: 2013Q3

REPORT INFORMATION
  Report Type: Spontaneous
  Country: US (occurrence: US)
  Receive Date: 20130828
  Receipt Date: 20130828
  Transmission Date: 20140515
  Serious: Yes (Hospitalization, Other)
  Sender: FDA-Public Use
  Company Number: US-AMGEN-KDL093543

PATIENT
  Age: 75 Year
  Sex: Male

DRUGS (1)
  1. ENBREL [Suspect]
     Indication: RHEUMATOID ARTHRITIS
     Dosage: 25 MG, 3 TIMES/WK
     Route: 058
     Dates: start: 20001211

REACTIONS (6)
  - Cardiac valve disease [Unknown]
  - Pericarditis [Unknown]
  - Renal failure chronic [Unknown]
  - Condition aggravated [Unknown]
  - Rheumatoid arthritis [Unknown]
  - Condition aggravated [Unknown]
